FAERS Safety Report 9172654 (Version 1)
Quarter: 2013Q1

REPORT INFORMATION
  Report Type: Spontaneous
  Country: US (occurrence: US)
  Receive Date: 20130319
  Receipt Date: 20130319
  Transmission Date: 20140127
  Serious: Yes (Hospitalization)
  Sender: FDA-Public Use
  Company Number: US-AMGEN-USASP2013018126

PATIENT
  Age: 51 Year
  Sex: Female

DRUGS (2)
  1. ENBREL [Suspect]
     Indication: RHEUMATOID ARTHRITIS
     Dosage: 50 MG, QWK
     Route: 058
     Dates: start: 20130110
  2. SULFA                              /00076401/ [Concomitant]
     Dosage: UNK

REACTIONS (4)
  - Serum sickness [Unknown]
  - White blood cell count decreased [Unknown]
  - Drug hypersensitivity [Unknown]
  - Subcutaneous abscess [Unknown]
